FAERS Safety Report 13740859 (Version 1)
Quarter: 2017Q3

REPORT INFORMATION
  Report Type: Spontaneous
  Country: US (occurrence: US)
  Receive Date: 20170710
  Receipt Date: 20170710
  Transmission Date: 20171127
  Serious: Yes (Life-Threatening, Other)
  Sender: FDA-Public Use
  Company Number: None

PATIENT
  Age: 58 Year
  Sex: Female
  Weight: 108 kg

DRUGS (3)
  1. XTAMPZA [Suspect]
     Active Substance: OXYCODONE
     Indication: OSTEOARTHRITIS
     Dosage: ?          QUANTITY:56 CAPSULE(S);?
     Route: 048
     Dates: start: 20170628, end: 20170705
  2. XTAMPZA [Suspect]
     Active Substance: OXYCODONE
     Indication: FIBROMYALGIA
     Dosage: ?          QUANTITY:56 CAPSULE(S);?
     Route: 048
     Dates: start: 20170628, end: 20170705
  3. XTAMPZA [Suspect]
     Active Substance: OXYCODONE
     Indication: RHEUMATOID ARTHRITIS
     Dosage: ?          QUANTITY:56 CAPSULE(S);?
     Route: 048
     Dates: start: 20170628, end: 20170705

REACTIONS (4)
  - Accidental overdose [None]
  - Product solubility abnormal [None]
  - Product substitution issue [None]
  - Sensation of foreign body [None]

NARRATIVE: CASE EVENT DATE: 20170705
